FAERS Safety Report 9795844 (Version 2)
Quarter: 2014Q2

REPORT INFORMATION
  Report Type: Spontaneous
  Country: US (occurrence: US)
  Receive Date: 20140103
  Receipt Date: 20140428
  Transmission Date: 20141212
  Serious: Yes (Hospitalization, Other)
  Sender: FDA-Public Use
  Company Number: US-ASTELLAS-2013US013553

PATIENT
  Age: 46 Year
  Sex: Male

DRUGS (6)
  1. PROGRAF [Suspect]
     Indication: RENAL TRANSPLANT
     Route: 048
     Dates: start: 19981016, end: 1998
  2. PROGRAF [Suspect]
     Indication: PANCREAS TRANSPLANT
     Route: 048
     Dates: start: 1998, end: 1998
  3. PROGRAF [Suspect]
     Route: 048
     Dates: start: 1998, end: 1999
  4. PROGRAF [Suspect]
     Route: 048
     Dates: start: 1999, end: 199903
  5. PROGRAF [Suspect]
     Route: 048
     Dates: start: 199903
  6. PROGRAF [Suspect]
     Dosage: 3 MG IN AM AND 2 MG IN PM
     Route: 048

REACTIONS (6)
  - Cerebrovascular accident [Recovering/Resolving]
  - Blindness [Recovering/Resolving]
  - Encephalomalacia [Unknown]
  - Carotid artery disease [Unknown]
  - Cerebrovascular accident [Unknown]
  - Off label use [Unknown]
